FAERS Safety Report 15936590 (Version 1)
Quarter: 2019Q1

REPORT INFORMATION
  Report Type: Spontaneous
  Country: US (occurrence: US)
  Receive Date: 20190207
  Receipt Date: 20190207
  Transmission Date: 20190417
  Serious: Yes (Other)
  Sender: FDA-Public Use
  Company Number: None

PATIENT
  Age: 72 Year
  Sex: Female
  Weight: 47.61 kg

DRUGS (2)
  1. PROLIA [Concomitant]
     Active Substance: DENOSUMAB
     Dates: start: 20160803, end: 20190207
  2. PROLIA [Suspect]
     Active Substance: DENOSUMAB

REACTIONS (2)
  - Amnesia [None]
  - Confusional state [None]

NARRATIVE: CASE EVENT DATE: 20190207
